FAERS Safety Report 5513258-2 (Version None)
Quarter: 2007Q4

REPORT INFORMATION
  Report Type: 
  Country: None (occurrence: None)
  Receive Date: 20071112
  Receipt Date: 20071030
  Transmission Date: 20080405
  Serious: Yes (Hospitalization)
  Sender: FDA-Public Use
  Company Number: MX-ELI_LILLY_AND_COMPANY-MX200710003399

PATIENT
  Age: 24 Year
  Sex: Male

DRUGS (2)
  1. CYMBALTA [Suspect]
     Indication: MAJOR DEPRESSION
     Dosage: 60 MG, UNKNOWN
     Route: 048
     Dates: start: 20070101
  2. ALCOHOL [Concomitant]
     Dosage: UNK, UNKNOWN
     Route: 065

REACTIONS (3)
  - ANXIETY [None]
  - PSYCHIATRIC SYMPTOM [None]
  - SUICIDAL IDEATION [None]
